FAERS Safety Report 22017540 (Version 1)
Quarter: 2023Q1

REPORT INFORMATION
  Report Type: Spontaneous
  Country: US (occurrence: None)
  Receive Date: 20230217
  Receipt Date: 20230217
  Transmission Date: 20230417
  Serious: No
  Sender: FDA-Public Use
  Company Number: None

PATIENT
  Age: 78 Year
  Sex: Female
  Weight: 101.7 kg

DRUGS (25)
  1. KISQALI [Suspect]
     Active Substance: RIBOCICLIB
     Indication: Breast cancer female
     Dosage: OTHER FREQUENCY : 21DON7DOFF;?
     Route: 048
  2. ALBUTEROL [Concomitant]
  3. ALIGN [Concomitant]
     Active Substance: BIFIDOBACTERIUM LONGUM SUBSP. INFANTIS
  4. AMLODIPINE [Concomitant]
     Active Substance: AMLODIPINE BESYLATE
  5. ATORVASTATIN [Concomitant]
  6. BREO ELLIPTA [Concomitant]
  7. CLINDAMYCIN [Concomitant]
     Active Substance: CLINDAMYCIN
  8. GLINDAMYCIN [Concomitant]
  9. GLUCOSAMINE-CHONDROTIN [Concomitant]
  10. VITAMIN C [Concomitant]
  11. MULTIVITAMIN [Concomitant]
  12. VITAMIN D3 [Concomitant]
  13. FASLODEX [Concomitant]
  14. GABAPENTIN [Concomitant]
  15. GAS X [Concomitant]
  16. LEVOTHYROXINE [Concomitant]
  17. CALCIUM [Concomitant]
     Active Substance: CALCIUM
  18. SINGULAIR [Concomitant]
  19. TRIAMTERENE [Concomitant]
  20. TUMS [Concomitant]
     Active Substance: CALCIUM CARBONATE
  21. ULORIC [Concomitant]
  22. VITAMIN D [Concomitant]
  23. WESTAB MAX [Concomitant]
  24. XGEVA [Concomitant]
  25. ZYRTEC [Concomitant]

REACTIONS (3)
  - Bacterial infection [None]
  - Cystitis [None]
  - Nonspecific reaction [None]
